FAERS Safety Report 6679530-8 (Version None)
Quarter: 2010Q2

REPORT INFORMATION
  Report Type: 
  Country: None (occurrence: None)
  Receive Date: 20100413
  Receipt Date: 20100331
  Transmission Date: 20101027
  Serious: Yes (Hospitalization, Other)
  Sender: FDA-Public Use
  Company Number: PHHY2010TW20971

PATIENT
  Age: 44 Year
  Sex: Female

DRUGS (9)
  1. CLOZAPINE [Suspect]
     Indication: SCHIZOPHRENIA
     Dosage: 50 MG/DAY
  2. CLOZAPINE [Suspect]
     Dosage: 100 MG/DAY
  3. CLOZAPINE [Suspect]
     Dosage: 150 MG/DAY
  4. CLOZAPINE [Suspect]
     Dosage: 200 MG/DAY
  5. CLOZAPINE [Suspect]
     Dosage: 400 MG/DAY
  6. FLUPENTIXOL [Suspect]
     Dosage: 3 MG/DAY
  7. ARIPIPRAZOLE [Suspect]
     Indication: SOCIAL AVOIDANT BEHAVIOUR
  8. ARIPIPRAZOLE [Suspect]
     Indication: PSYCHOMOTOR RETARDATION
  9. ARIPIPRAZOLE [Suspect]
     Indication: TACITURNITY

REACTIONS (13)
  - ANXIETY [None]
  - DIET REFUSAL [None]
  - DYSTONIA [None]
  - HALLUCINATION, AUDITORY [None]
  - PERSECUTORY DELUSION [None]
  - PLEUROTHOTONUS [None]
  - POOR QUALITY SLEEP [None]
  - PSYCHOMOTOR HYPERACTIVITY [None]
  - PSYCHOMOTOR RETARDATION [None]
  - PSYCHOTIC DISORDER [None]
  - SCHIZOPHRENIA [None]
  - SOCIAL AVOIDANT BEHAVIOUR [None]
  - TACITURNITY [None]
